FAERS Safety Report 8857619 (Version 3)
Quarter: 2014Q3

REPORT INFORMATION
  Report Type: Report from Study
  Country: None (occurrence: ES)
  Receive Date: 20121024
  Receipt Date: 20140725
  Transmission Date: 20150326
  Serious: Yes (Hospitalization, Other)
  Sender: FDA-Public Use
  Company Number: ES-OTSUKA-EU-2012-10269

PATIENT
  Sex: Male

DRUGS (7)
  1. CARBOPLATIN. [Concomitant]
     Active Substance: CARBOPLATIN
     Indication: LUNG NEOPLASM MALIGNANT
     Dosage: 281.3 MG MILLIGRAM(S), NA
     Route: 042
     Dates: start: 20120920
  2. DEXCLOR [Concomitant]
     Indication: PROPHYLAXIS
     Dosage: 5 MG MILLIGRAM(S), NA
     Route: 042
     Dates: start: 20120920
  3. GRANISETRON [Concomitant]
     Active Substance: GRANISETRON
     Indication: PROPHYLAXIS
     Dosage: 1 MG MILLIGRAM(S), NA
     Route: 042
     Dates: start: 20120920
  4. RANITIDINE [Concomitant]
     Active Substance: RANITIDINE\RANITIDINE HYDROCHLORIDE
     Indication: PROPHYLAXIS
     Dosage: 50 MG MILLIGRAM(S), NA
     Route: 042
     Dates: start: 20120920
  5. SAMSCA [Suspect]
     Active Substance: TOLVAPTAN
     Indication: INAPPROPRIATE ANTIDIURETIC HORMONE SECRETION
     Dosage: 15 MG MILLIGRAM(S), DAILY DOSE
     Route: 048
     Dates: start: 20120908, end: 20120926
  6. TAXOL [Concomitant]
     Active Substance: PACLITAXEL
     Indication: LUNG NEOPLASM MALIGNANT
     Dosage: 203 MG MILLIGRAM(S), NA
     Route: 042
     Dates: start: 20120920
  7. DEXAMETHASONE. [Concomitant]
     Active Substance: DEXAMETHASONE
     Indication: PROPHYLAXIS
     Dosage: 20 MG MILLIGRAM(S), NA
     Route: 042
     Dates: start: 20120920

REACTIONS (4)
  - Haematuria [Recovered/Resolved]
  - Arrhythmia [Recovered/Resolved with Sequelae]
  - Diarrhoea [Recovered/Resolved]
  - Urinary tract infection [Recovered/Resolved]

NARRATIVE: CASE EVENT DATE: 20120916
